FAERS Safety Report 24097624 (Version 1)
Quarter: 2024Q3

REPORT INFORMATION
  Report Type: Spontaneous
  Country: CA (occurrence: CA)
  Receive Date: 20240716
  Receipt Date: 20240716
  Transmission Date: 20241016
  Serious: Yes (Other)
  Sender: FRESENIUS KABI
  Company Number: CA-FreseniusKabi-FK202410880

PATIENT
  Age: 78 Year
  Sex: Male

DRUGS (6)
  1. FOLIC ACID [Suspect]
     Active Substance: FOLIC ACID
     Indication: Rheumatoid arthritis
     Dosage: DOSAGE FORM: NOT SPECIFIED ?ROUTE OF ADMIN: UNKNOWN
  2. CELEBREX [Suspect]
     Active Substance: CELECOXIB
     Indication: Rheumatoid arthritis
     Dosage: FORM: CAPSULES?ROUTE: UNKNOWN
  3. METHOTREXATE [Suspect]
     Active Substance: METHOTREXATE
     Indication: Rheumatoid arthritis
     Dosage: ROUTE: UNKNOWN
  4. PANTOPRAZOLE SODIUM [Suspect]
     Active Substance: PANTOPRAZOLE SODIUM
     Indication: Product used for unknown indication
     Dosage: FORM: TABLET (ENTERIC-COATED)?ROUTE: UNKNOWN
  5. PREDNISONE [Suspect]
     Active Substance: PREDNISONE
     Indication: Rheumatoid arthritis
     Dosage: FORM: NOT SPECIFIED?ROUTE: UNKNOWN
  6. XELJANZ [Concomitant]
     Active Substance: TOFACITINIB CITRATE
     Indication: Product used for unknown indication
     Dosage: FORM: NOT SPECIFIED?ROUTE: UNKNOWN

REACTIONS (4)
  - Musculoskeletal disorder [Not Recovered/Not Resolved]
  - Post procedural discharge [Not Recovered/Not Resolved]
  - Post procedural infection [Not Recovered/Not Resolved]
  - Wound secretion [Not Recovered/Not Resolved]
